FAERS Safety Report 8245994-1 (Version None)
Quarter: 2012Q1

REPORT INFORMATION
  Report Type: 
  Country: None (occurrence: None)
  Receive Date: 20120328
  Receipt Date: 20120328
  Transmission Date: 20120608
  Serious: Yes (Hospitalization)
  Sender: FDA-Public Use
  Company Number: None

PATIENT
  Sex: Male
  Weight: 56.6 kg

DRUGS (3)
  1. LISINOPRIL AND HYDROCHLOROTHIAZIDE [Concomitant]
  2. CISPLATIN [Suspect]
     Dosage: 161 MG
     Dates: end: 20120321
  3. FLUOROURACIL [Suspect]
     Dosage: 6440 MG
     Dates: end: 20120325

REACTIONS (4)
  - ORAL PAIN [None]
  - OROPHARYNGEAL PAIN [None]
  - MUCOSAL INFLAMMATION [None]
  - DYSPHAGIA [None]
